FAERS Safety Report 24645922 (Version 2)
Quarter: 2024Q4

REPORT INFORMATION
  Report Type: Other
  Country: CN (occurrence: CN)
  Receive Date: 20241121
  Receipt Date: 20241125
  Transmission Date: 20250115
  Serious: Yes (Hospitalization, Other)
  Sender: DEXCEL LTD.
  Company Number: CN-DEXPHARM-2024-4522

PATIENT
  Age: 85 Year
  Sex: Male

DRUGS (8)
  1. ESOMEPRAZOLE [Suspect]
     Active Substance: ESOMEPRAZOLE
     Dosage: INTRAVENOUS ESOMEPRAZOLE 40 MG QD FOR 1 WEEK
     Route: 050
  2. ASPIRIN [Concomitant]
     Active Substance: ASPIRIN
  3. ATORVASTATIN [Concomitant]
     Active Substance: ATORVASTATIN
  4. FERRIC POLYSACCHARIDE COMPLEX [Concomitant]
     Active Substance: FERRIC POLYSACCHARIDE COMPLEX
  5. IRBESARTAN [Concomitant]
     Active Substance: IRBESARTAN
  6. OCTREOTIDE [Concomitant]
     Active Substance: OCTREOTIDE
  7. MAGNESIUM SULFATE [Concomitant]
     Dosage: 2.5G  WAS ADMINISTERED INTRAVENOUSLY  FOR 2 DAYS
     Route: 050
  8. POTASSIUM PHOSPHATE [Concomitant]
     Active Substance: POTASSIUM PHOSPHATE
     Dosage: 2ML WAS ADMINISTERED ORALLY DAILY
     Route: 050

REACTIONS (5)
  - Hypomagnesaemia [Recovered/Resolved]
  - Seizure [Unknown]
  - Dyspnoea [Unknown]
  - Heart rate increased [Unknown]
  - Loss of consciousness [Unknown]

NARRATIVE: CASE EVENT DATE: 20220201
